FAERS Safety Report 8111972-6 (Version None)
Quarter: 2012Q1

REPORT INFORMATION
  Report Type: 
  Country: None (occurrence: None)
  Receive Date: 20120203
  Receipt Date: 20120124
  Transmission Date: 20120608
  Serious: Yes (Hospitalization)
  Sender: FDA-Public Use
  Company Number: FR-NAPPMUNDI-GBR-2012-0009664

PATIENT
  Age: 52 Year
  Sex: Male

DRUGS (11)
  1. OXAZEPAM [Concomitant]
  2. NEURONTIN [Concomitant]
     Dosage: 600 MG, UNK
  3. TERCIAN                            /00759301/ [Concomitant]
     Dosage: 25 MG, UNK
  4. ATARAX [Concomitant]
     Dosage: 100 MG, UNK
  5. OXYCONTIN [Suspect]
     Indication: PAIN
     Dosage: 80 MG, BID
     Route: 048
     Dates: start: 20090101, end: 20110911
  6. AMITRIPTYLINE HCL [Concomitant]
  7. TRUVADA [Concomitant]
     Dosage: 200 MG, UNK
  8. LEPTICUR [Concomitant]
     Dosage: 10 MG, UNK
  9. CLOPIXOL                           /00876702/ [Concomitant]
  10. BACTRIM [Concomitant]
  11. NORVIR [Concomitant]

REACTIONS (1)
  - COMA [None]
